FAERS Safety Report 9880946 (Version 4)
Quarter: 2014Q2

REPORT INFORMATION
  Report Type: Spontaneous
  Country: JP (occurrence: JP)
  Receive Date: 20140207
  Receipt Date: 20140502
  Transmission Date: 20141212
  Serious: Yes (Hospitalization)
  Sender: FDA-Public Use
  Company Number: JP-ELI_LILLY_AND_COMPANY-JP201401011560

PATIENT
  Age: 27 Year
  Sex: Male
  Weight: 38 kg

DRUGS (7)
  1. CYMBALTA [Suspect]
     Indication: DEPRESSION
     Dosage: 20 MG, QD
     Route: 048
     Dates: start: 20131212, end: 20140124
  2. BIBITTOACE [Concomitant]
     Indication: INSOMNIA
     Dosage: 2 MG, QD
     Route: 048
     Dates: start: 2011, end: 20140124
  3. VEGETAMIN B [Concomitant]
     Indication: DEPRESSION
     Dosage: 2 DF, QD
     Route: 048
     Dates: start: 2011, end: 20140124
  4. NITRAZEPAM [Concomitant]
     Indication: INSOMNIA
     Dosage: 5 MG, QD
     Route: 048
     Dates: start: 2011, end: 20140124
  5. ZINC [Concomitant]
     Dosage: UNK
     Route: 048
     Dates: start: 20131227, end: 20140124
  6. MULTIPLE VITAMINS [Concomitant]
     Dosage: UNK
     Route: 048
     Dates: start: 2013, end: 20140124
  7. RIVOTRIL [Concomitant]
     Indication: DEPRESSION
     Dosage: 0.5 MG, QD
     Route: 048
     Dates: end: 201312

REACTIONS (3)
  - Liver disorder [Recovering/Resolving]
  - Alanine aminotransferase increased [Recovering/Resolving]
  - Aspartate aminotransferase increased [Recovering/Resolving]
